FAERS Safety Report 7933376-9 (Version None)
Quarter: 2011Q4

REPORT INFORMATION
  Report Type: 
  Country: None (occurrence: None)
  Receive Date: 20111116
  Receipt Date: 20111104
  Transmission Date: 20120403
  Serious: Yes (Hospitalization)
  Sender: FDA-Public Use
  Company Number: US-JNJFOC-20111103049

PATIENT
  Age: 69 Year
  Sex: Female
  Weight: 107.3 kg

DRUGS (1)
  1. DACOGEN [Suspect]
     Indication: ACUTE MYELOID LEUKAEMIA
     Dosage: 7.5 MG, 1 IN 1 DAY, INTRAVENOUS
     Route: 042
     Dates: start: 20110606

REACTIONS (7)
  - FEELING COLD [None]
  - BODY TEMPERATURE INCREASED [None]
  - BLOOD CULTURE POSITIVE [None]
  - BACTERIAL INFECTION [None]
  - HYPOTENSION [None]
  - DYSPNOEA [None]
  - INTERSTITIAL LUNG DISEASE [None]
